FAERS Safety Report 20581669 (Version 9)
Quarter: 2023Q1

REPORT INFORMATION
  Report Type: Report from Study
  Country: JP (occurrence: JP)
  Receive Date: 20220311
  Receipt Date: 20230206
  Transmission Date: 20230418
  Serious: Yes (Other)
  Sender: FDA-Public Use
  Company Number: JP-TAKEDA-2022TJP026037

PATIENT

DRUGS (6)
  1. CABOZANTINIB [Suspect]
     Active Substance: CABOZANTINIB
     Indication: Renal cell carcinoma
     Dosage: 60 MG, QD
     Route: 048
     Dates: start: 20211122, end: 20211226
  2. CABOZANTINIB [Suspect]
     Active Substance: CABOZANTINIB
     Dosage: 40 MG, QD
     Route: 048
     Dates: start: 20211227, end: 20220124
  3. CABOZANTINIB [Suspect]
     Active Substance: CABOZANTINIB
     Dosage: 20 MG, QD
     Route: 048
     Dates: start: 20220214, end: 20220509
  4. TRAMADOL [Concomitant]
     Active Substance: TRAMADOL
     Indication: Back pain
     Dosage: UNK
     Route: 048
     Dates: start: 20211019, end: 20220123
  5. LOXOPROFEN SODIUM [Concomitant]
     Active Substance: LOXOPROFEN SODIUM
     Indication: Bone pain
     Dosage: UNK
     Route: 048
     Dates: start: 20220211
  6. MIROGABALIN BESYLATE [Concomitant]
     Active Substance: MIROGABALIN BESYLATE
     Indication: Bone pain
     Dosage: UNK
     Route: 048
     Dates: start: 20220602

REACTIONS (3)
  - Hepatic function abnormal [Recovering/Resolving]
  - Stomatitis [Recovering/Resolving]
  - Dysphonia [Not Recovered/Not Resolved]

NARRATIVE: CASE EVENT DATE: 20211213
